FAERS Safety Report 12311499 (Version 1)
Quarter: 2016Q2

REPORT INFORMATION
  Report Type: Spontaneous
  Country: US (occurrence: US)
  Receive Date: 20160427
  Receipt Date: 20160427
  Transmission Date: 20160815
  Serious: No
  Sender: FDA-Public Use
  Company Number: US-MDT-ADR-2016-00755

PATIENT
  Age: 55 Year
  Sex: Male

DRUGS (3)
  1. BUPIVACAINE. [Suspect]
     Active Substance: BUPIVACAINE
     Dosage: 9.887MG/DAY
     Route: 037
     Dates: start: 2003
  2. COMPOUNDED BACLOFEN [Suspect]
     Active Substance: BACLOFEN
     Dosage: 395MCG/DAY
     Route: 037
     Dates: start: 2003
  3. MORPHINE [Suspect]
     Active Substance: MORPHINE
     Dosage: 0.5537MG/DAY
     Route: 037
     Dates: start: 2003

REACTIONS (2)
  - Burning sensation [Unknown]
  - No therapeutic response [Unknown]

NARRATIVE: CASE EVENT DATE: 20160422
